FAERS Safety Report 7648301-8 (Version None)
Quarter: 2011Q3

REPORT INFORMATION
  Report Type: 
  Country: None (occurrence: None)
  Receive Date: 20110801
  Receipt Date: 20110727
  Transmission Date: 20111222
  Serious: Yes (Other)
  Sender: FDA-Public Use
  Company Number: US-PFIZER INC-2011159063

PATIENT
  Sex: Male
  Weight: 73.923 kg

DRUGS (5)
  1. LYRICA [Suspect]
     Indication: NEURALGIA
     Dosage: 75 MG, 2X/DAY
     Route: 048
     Dates: start: 20110711, end: 20110713
  2. PREDNISONE [Suspect]
     Indication: NEUROPATHY PERIPHERAL
     Dosage: UNK
     Route: 048
     Dates: start: 20110711, end: 20110717
  3. DICLOFENAC [Concomitant]
     Dosage: UNK
  4. LYRICA [Suspect]
     Indication: NEUROPATHY PERIPHERAL
  5. ARTHROTEC [Concomitant]
     Dosage: UNK

REACTIONS (3)
  - HERPES ZOSTER [None]
  - BLISTER [None]
  - RASH [None]
